FAERS Safety Report 11723279 (Version 1)
Quarter: 2015Q4

REPORT INFORMATION
  Report Type: Spontaneous
  Country: BR (occurrence: BR)
  Receive Date: 20151111
  Receipt Date: 20151111
  Transmission Date: 20160304
  Serious: Yes (Hospitalization)
  Sender: FDA-Public Use
  Company Number: BR-PFIZER INC-2015306831

PATIENT
  Age: 79 Year
  Sex: Female

DRUGS (8)
  1. LYRICA [Suspect]
     Active Substance: PREGABALIN
     Indication: NERVE COMPRESSION
  2. AMLODIPINE [Concomitant]
     Active Substance: AMLODIPINE BESYLATE
     Indication: BLOOD PRESSURE MEASUREMENT
     Dosage: UNK, 2X/DAY
     Dates: start: 2013
  3. OMEPRAZOLE. [Concomitant]
     Active Substance: OMEPRAZOLE
  4. LYRICA [Suspect]
     Active Substance: PREGABALIN
     Indication: SPINAL DISORDER
     Dosage: 150 MG, 1X/DAY
     Route: 048
     Dates: start: 20140814, end: 20140814
  5. SIMVASTATIN. [Concomitant]
     Active Substance: SIMVASTATIN
     Indication: BLOOD CHOLESTEROL
     Dosage: UNK, 2X/DAY
     Dates: start: 2013
  6. METHYLDOPA. [Concomitant]
     Active Substance: METHYLDOPA
     Indication: HYPERTENSION
     Dosage: UNK, 2X/DAY
     Dates: start: 2014
  7. HYDROCHLOROTHIAZIDE. [Concomitant]
     Active Substance: HYDROCHLOROTHIAZIDE
  8. ARADOIS [Concomitant]
     Active Substance: LOSARTAN POTASSIUM

REACTIONS (7)
  - Feeling abnormal [Recovered/Resolved]
  - Localised infection [Unknown]
  - Dizziness [Recovered/Resolved]
  - Gait disturbance [Recovered/Resolved]
  - Head discomfort [Recovered/Resolved]
  - Bedridden [Not Recovered/Not Resolved]
  - Fear [Recovered/Resolved]

NARRATIVE: CASE EVENT DATE: 20140814
